FAERS Safety Report 20126357 (Version 1)
Quarter: 2021Q4

REPORT INFORMATION
  Report Type: Report from Study
  Country: IT (occurrence: IT)
  Receive Date: 20211129
  Receipt Date: 20211129
  Transmission Date: 20220303
  Serious: Yes (Hospitalization)
  Sender: FDA-Public Use
  Company Number: IT-TAKEDA-2021TUS075413

PATIENT
  Age: 48 Year
  Sex: Male
  Weight: 88 kg

DRUGS (8)
  1. ADVATE [Suspect]
     Active Substance: ANTIHEMOPHILIC FACTOR, HUMAN RECOMBINANT
     Indication: Product used for unknown indication
     Dosage: 4000 INTERNATIONAL UNIT
     Route: 042
     Dates: start: 20170403
  2. ADVATE [Suspect]
     Active Substance: ANTIHEMOPHILIC FACTOR, HUMAN RECOMBINANT
     Indication: Product used for unknown indication
     Dosage: 4000 INTERNATIONAL UNIT
     Route: 042
     Dates: start: 20170403
  3. ADVATE [Suspect]
     Active Substance: ANTIHEMOPHILIC FACTOR, HUMAN RECOMBINANT
     Indication: Product used for unknown indication
     Dosage: 4000 INTERNATIONAL UNIT
     Route: 042
     Dates: start: 20170403
  4. CHOLECALCIFEROL [Concomitant]
     Active Substance: CHOLECALCIFEROL
     Indication: Osteoporosis
     Dosage: 30 DOSAGE FORM, 1/WEEK
     Route: 065
  5. LEDIPASVIRUM [Concomitant]
     Indication: Hepatitis C
     Dosage: 400 MILLIGRAM, QD
     Route: 065
     Dates: start: 20160129, end: 20160421
  6. ACETAMINOPHEN [Concomitant]
     Active Substance: ACETAMINOPHEN
     Indication: Influenza
     Dosage: 1000 MILLIGRAM, QD
     Route: 065
     Dates: start: 20170103, end: 20170106
  7. ACETAMINOPHEN [Concomitant]
     Active Substance: ACETAMINOPHEN
     Dosage: 1000 MILLIGRAM, QD
     Route: 065
     Dates: start: 20161015, end: 20161017
  8. RIBAVIRIN [Concomitant]
     Active Substance: RIBAVIRIN
     Indication: Antiretroviral therapy
     Dosage: 1200 MILLIGRAM, QD
     Route: 065
     Dates: start: 20160129, end: 20160421

REACTIONS (1)
  - Inguinal hernia [Recovered/Resolved]

NARRATIVE: CASE EVENT DATE: 20170904
